FAERS Safety Report 9293401 (Version 1)
Quarter: 2013Q2

REPORT INFORMATION
  Report Type: Report from Study
  Country: GB (occurrence: GB)
  Receive Date: 20130516
  Receipt Date: 20130516
  Transmission Date: 20140414
  Serious: Yes (Death, Other)
  Sender: FDA-Public Use
  Company Number: GB-AMGEN-GBRCT2013034268

PATIENT
  Age: 68 Year
  Sex: Male
  Weight: 111 kg

DRUGS (4)
  1. ETANERCEPT [Suspect]
     Indication: RHEUMATOID ARTHRITIS
     Dosage: 25 MG, 2 TIMES/WK
     Route: 058
     Dates: start: 20080416, end: 20090119
  2. PREDNISOLONE [Concomitant]
     Dosage: UNK
     Route: 065
  3. TRITACE [Concomitant]
     Dosage: UNK UNK, UNK
     Route: 065
  4. WARFARIN [Concomitant]
     Dosage: UNK UNK, UNK
     Route: 065

REACTIONS (4)
  - Respiratory failure [Fatal]
  - Pulmonary fibrosis [Fatal]
  - Rheumatoid arthritis [Fatal]
  - Myocardial ischaemia [Unknown]
